FAERS Safety Report 23264203 (Version 3)
Quarter: 2024Q1

REPORT INFORMATION
  Report Type: Spontaneous
  Country: CA (occurrence: CA)
  Receive Date: 20231205
  Receipt Date: 20240104
  Transmission Date: 20240409
  Serious: Yes (Death, Life-Threatening, Hospitalization, Other)
  Sender: FDA-Public Use
  Company Number: CA-PFIZER INC-202300430427

PATIENT
  Age: 81 Year
  Sex: Male

DRUGS (13)
  1. VYNDAMAX [Suspect]
     Active Substance: TAFAMIDIS
     Indication: Cardiac amyloidosis
     Dosage: 61 MG, 1X/DAY
     Route: 048
     Dates: start: 20231018
  2. ASPIRIN [Concomitant]
     Active Substance: ASPIRIN
     Dosage: 81 MG, 1X/DAY
  3. XARELTO [Concomitant]
     Active Substance: RIVAROXABAN
     Dosage: 15 MG, 1X/DAY
  4. ALLOPURINOL APOTEX [Concomitant]
     Dosage: 300 MG, DAILY
  5. ALBUTEROL [Concomitant]
     Active Substance: ALBUTEROL
     Dosage: 100 UG, DAILY
  6. VITAMIN D3 [Concomitant]
     Active Substance: CHOLECALCIFEROL
     Dosage: 1000 IU 25 MG
  7. RHINOCORT AQUA [Concomitant]
     Active Substance: BUDESONIDE
     Dosage: 64 UG, DAILY
  8. ACETAMINOPHEN [Concomitant]
     Active Substance: ACETAMINOPHEN
     Dosage: 500 MG TABLETS EXTRA STRENGHT EASY TO SWALLOW, AS NEEDED
  9. PRAVASTATIN AURUS [Concomitant]
     Dosage: 20 MG, DAILY
  10. FUROSEMIDE [Concomitant]
     Active Substance: FUROSEMIDE
     Dosage: 80 MG AM AND 40 MG PM
  11. DILTIAZEM [Concomitant]
     Active Substance: DILTIAZEM
     Dosage: 120 MG, 1X/DAY
  12. SPIRONOLACTONE [Concomitant]
     Active Substance: SPIRONOLACTONE
     Dosage: 12.5 MG, 1X/DAY
  13. SPIRIVA RESPIMAT [Concomitant]
     Active Substance: TIOTROPIUM BROMIDE
     Dosage: 5 UG, 1X/DAY

REACTIONS (1)
  - Cardiac failure congestive [Fatal]
